FAERS Safety Report 4605971-6 (Version None)
Quarter: 2005Q2

REPORT INFORMATION
  Report Type: 
  Country: None (occurrence: None)
  Receive Date: 20050303
  Receipt Date: 20041201
  Transmission Date: 20051028
  Serious: No
  Sender: FDA-Public Use
  Company Number: 200421099BWH

PATIENT
  Age: 82 Year
  Sex: Male

DRUGS (5)
  1. LEVITRA [Suspect]
     Indication: ERECTILE DYSFUNCTION
     Dosage: 30 MG, OW, ORAL
     Route: 048
  2. MULTI-VITAMIN [Concomitant]
  3. VITAMIN E [Concomitant]
  4. VIAGRA [Concomitant]
  5. CIALIS [Concomitant]

REACTIONS (1)
  - NO ADVERSE DRUG EFFECT [None]
